FAERS Safety Report 8557045-X (Version None)
Quarter: 2012Q3

REPORT INFORMATION
  Report Type: 
  Country: None (occurrence: None)
  Receive Date: 20120720
  Receipt Date: 20120710
  Transmission Date: 20120928
  Serious: Yes (Other)
  Sender: FDA-Public Use
  Company Number: US-008417

PATIENT
  Age: 9 Year
  Sex: Female
  Weight: 19.9 kg

DRUGS (1)
  1. TEV-TROPIN [Suspect]
     Indication: DWARFISM
     Dosage: (0.8 MG QD SUBCUTANEOUS)
     Route: 058
     Dates: start: 20120202, end: 20120420

REACTIONS (2)
  - MYOPIA [None]
  - OPTIC TRACT GLIOMA [None]
